FAERS Safety Report 14595695 (Version 1)
Quarter: 2018Q1

REPORT INFORMATION
  Report Type: Spontaneous
  Country: US (occurrence: US)
  Receive Date: 20180303
  Receipt Date: 20180303
  Transmission Date: 20180509
  Serious: Yes (Other)
  Sender: FDA-Public Use
  Company Number: US-ROCHE-2079258

PATIENT
  Age: 71 Year
  Sex: Female
  Weight: 71.73 kg

DRUGS (1)
  1. ESBRIET [Suspect]
     Active Substance: PIRFENIDONE
     Indication: IDIOPATHIC PULMONARY FIBROSIS
     Dosage: ONGOING
     Route: 048
     Dates: start: 20171227

REACTIONS (3)
  - Blister [Unknown]
  - Rash erythematous [Unknown]
  - Pruritus [Unknown]

NARRATIVE: CASE EVENT DATE: 20180218
